FAERS Safety Report 22046347 (Version 2)
Quarter: 2023Q1

REPORT INFORMATION
  Report Type: Spontaneous
  Country: US (occurrence: US)
  Receive Date: 20230228
  Receipt Date: 20230309
  Transmission Date: 20230418
  Serious: No
  Sender: FDA-Public Use
  Company Number: US-KYOWAKIRIN-2023BKK003006

PATIENT

DRUGS (1)
  1. CRYSVITA [Suspect]
     Active Substance: BUROSUMAB-TWZA
     Indication: Osteomalacia
     Dosage: 150 MG, 1X/2 WEEKS
     Route: 058
     Dates: start: 20220523

REACTIONS (2)
  - Weight increased [Unknown]
  - Product use in unapproved indication [Not Recovered/Not Resolved]
